FAERS Safety Report 9344569 (Version 3)
Quarter: 2013Q3

REPORT INFORMATION
  Report Type: Spontaneous
  Country: US (occurrence: US)
  Receive Date: 20130612
  Receipt Date: 20130807
  Transmission Date: 20140515
  Serious: No
  Sender: FDA-Public Use
  Company Number: US-PFIZER INC-2013173007

PATIENT
  Age: 12 Year
  Sex: Male

DRUGS (1)
  1. ZYVOX [Suspect]
     Dosage: 2 ML, 2X/DAY
     Route: 048
     Dates: start: 20130603

REACTIONS (2)
  - Circumstance or information capable of leading to medication error [Unknown]
  - Drug effect incomplete [Unknown]
